FAERS Safety Report 21952376 (Version 1)
Quarter: 2023Q1

REPORT INFORMATION
  Report Type: Spontaneous
  Country: NO (occurrence: NO)
  Receive Date: 20230203
  Receipt Date: 20230203
  Transmission Date: 20230418
  Serious: Yes (Disabling)
  Sender: FDA-Public Use
  Company Number: None

PATIENT
  Sex: Female
  Weight: 90 kg

DRUGS (1)
  1. ESCITALOPRAM OXALATE [Suspect]
     Active Substance: ESCITALOPRAM OXALATE
     Indication: Anxiety
     Dosage: 10 NOS
     Dates: start: 20210712, end: 20220722

REACTIONS (14)
  - Antidepressant discontinuation syndrome [Not Recovered/Not Resolved]
  - Flat affect [Unknown]
  - Pain [Unknown]
  - Burning sensation [Unknown]
  - Mood altered [Unknown]
  - Myalgia [Not Recovered/Not Resolved]
  - Hypoaesthesia [Not Recovered/Not Resolved]
  - Libido decreased [Unknown]
  - Fatigue [Unknown]
  - Anorgasmia [Unknown]
  - Palpitations [Unknown]
  - Weight increased [Unknown]
  - Dry mouth [Unknown]
  - Headache [Unknown]

NARRATIVE: CASE EVENT DATE: 20220801
